FAERS Safety Report 9812153 (Version 1)
Quarter: 2014Q1

REPORT INFORMATION
  Report Type: Spontaneous
  Country: US (occurrence: US)
  Receive Date: 20140111
  Receipt Date: 20140111
  Transmission Date: 20141002
  Serious: No
  Sender: FDA-Public Use
  Company Number: US-009507513-1312USA009378

PATIENT
  Age: 58 Year
  Sex: Female

DRUGS (1)
  1. VICTRELIS [Suspect]
     Dosage: 800 MG, Q8H
     Route: 048
     Dates: start: 20130918

REACTIONS (2)
  - Formication [Unknown]
  - Chest pain [Unknown]
